FAERS Safety Report 6403500-8 (Version None)
Quarter: 2009Q4

REPORT INFORMATION
  Report Type: 
  Country: None (occurrence: None)
  Receive Date: 20091013
  Receipt Date: 20090929
  Transmission Date: 20100525
  Serious: Yes (Hospitalization)
  Sender: FDA-Public Use
  Company Number: IMP_04582_2009

PATIENT
  Age: 7 Year
  Sex: Female

DRUGS (6)
  1. CHLOROQUINE PHOSPHATE [Suspect]
     Indication: CHILLS
     Dosage: (1.5 G 1X,)
     Dates: start: 20080101, end: 20080101
  2. CHLOROQUINE PHOSPHATE [Suspect]
     Indication: PYREXIA
     Dosage: (1.5 G 1X,)
     Dates: start: 20080101, end: 20080101
  3. CHLOROQUINE PHOSPHATE [Suspect]
     Indication: VOMITING
     Dosage: (1.5 G 1X,)
     Dates: start: 20080101, end: 20080101
  4. PARACETAMOL (PARACETAMOL) [Suspect]
     Indication: CHILLS
     Dosage: (DF)
     Dates: start: 20080101, end: 20080101
  5. PARACETAMOL (PARACETAMOL) [Suspect]
     Indication: PYREXIA
     Dosage: (DF)
     Dates: start: 20080101, end: 20080101
  6. PARACETAMOL (PARACETAMOL) [Suspect]
     Indication: VOMITING
     Dosage: (DF)
     Dates: start: 20080101, end: 20080101

REACTIONS (8)
  - ABNORMAL BEHAVIOUR [None]
  - HEART RATE INCREASED [None]
  - INCORRECT DOSE ADMINISTERED [None]
  - LOGORRHOEA [None]
  - OVERDOSE [None]
  - PSYCHOTIC DISORDER [None]
  - RESPIRATORY RATE INCREASED [None]
  - RESTLESSNESS [None]
